FAERS Safety Report 25467622 (Version 1)
Quarter: 2025Q2

REPORT INFORMATION
  Report Type: Spontaneous
  Country: US (occurrence: None)
  Receive Date: 20250622
  Receipt Date: 20250622
  Transmission Date: 20250716
  Serious: Yes (Other)
  Sender: FDA-CTU
  Company Number: None

PATIENT
  Age: 38 Year
  Sex: Male
  Weight: 61.65 kg

DRUGS (2)
  1. CIPROFLOXACIN [Suspect]
     Active Substance: CIPROFLOXACIN
     Indication: Prostatitis
     Dosage: OTHER QUANTITY : 28 TABLET(S);?FREQUENCY : EVERY 12 HOURS;?
     Route: 048
     Dates: start: 20250608
  2. CIPROFLOXACIN [Suspect]
     Active Substance: CIPROFLOXACIN
     Indication: Urinary tract infection

REACTIONS (5)
  - Paraesthesia [None]
  - Hypoaesthesia [None]
  - Food interaction [None]
  - Discomfort [None]
  - Neuropathy peripheral [None]

NARRATIVE: CASE EVENT DATE: 20250619
